FAERS Safety Report 10571493 (Version 1)
Quarter: 2014Q4

REPORT INFORMATION
  Report Type: Spontaneous
  Country: US (occurrence: US)
  Receive Date: 20141107
  Receipt Date: 20141107
  Transmission Date: 20150529
  Serious: No
  Sender: FDA-Public Use
  Company Number: US-GLAXOSMITHKLINE-US2014009897

PATIENT
  Age: 42 Year
  Sex: Male

DRUGS (5)
  1. AMLODIPINE [Concomitant]
     Active Substance: AMLODIPINE BESYLATE
  2. LAMOTRIGINE PROLONGED-RELEASE TABLET [Suspect]
     Active Substance: LAMOTRIGINE
     Indication: SEIZURE
     Dosage: 600 MG, QD
     Route: 048
     Dates: start: 20140425
  3. DETOX (NOS) [Concomitant]
  4. GARCINIA CAMBOGIA [Concomitant]
     Active Substance: HYDROXYCITRIC ACID
  5. ADVAIR HFA [Concomitant]
     Active Substance: FLUTICASONE PROPIONATE\SALMETEROL XINAFOATE

REACTIONS (2)
  - Laboratory test abnormal [Unknown]
  - Drug screen false positive [Unknown]

NARRATIVE: CASE EVENT DATE: 20141020
